FAERS Safety Report 25915295 (Version 3)
Quarter: 2025Q4

REPORT INFORMATION
  Report Type: Report from Study
  Country: EU (occurrence: EU)
  Receive Date: 20251013
  Receipt Date: 20251114
  Transmission Date: 20260117
  Serious: Yes (Other)
  Sender: AVERITAS
  Company Number: EU-GRUNENTHAL-2025-123624

PATIENT
  Age: 40 Year
  Sex: Female

DRUGS (5)
  1. QUTENZA [Suspect]
     Active Substance: CAPSAICIN
     Indication: Neuralgia
     Dosage: 2 DOSAGE FORM, ONCE
     Route: 003
     Dates: start: 20251006, end: 20251006
  2. QUTENZA [Suspect]
     Active Substance: CAPSAICIN
     Dosage: 2 DOSAGE FORM, ONCE
     Route: 003
     Dates: start: 20251006, end: 20251006
  3. LEVOTHYROXINE SODIUM [Concomitant]
     Active Substance: LEVOTHYROXINE SODIUM
     Indication: Product used for unknown indication
     Dosage: UNK
     Route: 065
  4. LYRICA [Concomitant]
     Active Substance: PREGABALIN
     Indication: Product used for unknown indication
     Dosage: 1 DOSAGE FORM, 2/DAY
     Route: 065
  5. LYRICA [Concomitant]
     Active Substance: PREGABALIN
     Dosage: 1 DOSAGE FORM, 2/DAY
     Route: 065

REACTIONS (7)
  - Application site pain [Recovered/Resolved]
  - Application site inflammation [Recovered/Resolved]
  - Application site erythema [Recovered/Resolved]
  - Nail discolouration [Recovered/Resolved]
  - Pain [Recovered/Resolved with Sequelae]
  - Lymphoedema [Recovered/Resolved with Sequelae]
  - Product use issue [Unknown]

NARRATIVE: CASE EVENT DATE: 20251006
